FAERS Safety Report 5592950-8 (Version None)
Quarter: 2008Q1

REPORT INFORMATION
  Report Type: 
  Country: None (occurrence: None)
  Receive Date: 20080116
  Receipt Date: 20080103
  Transmission Date: 20080703
  Serious: Yes (Hospitalization, Other)
  Sender: FDA-Public Use
  Company Number: US-ELI_LILLY_AND_COMPANY-US200712001869

PATIENT
  Sex: Female
  Weight: 36.281 kg

DRUGS (11)
  1. FORTEO [Suspect]
     Indication: RHEUMATOID ARTHRITIS
     Dosage: 20 UG, UNK
     Dates: start: 20060701
  2. PREDNISONE TAB [Concomitant]
  3. DARVOCET [Concomitant]
  4. LISINOPRIL [Concomitant]
  5. PROTONIX [Concomitant]
  6. CLARINEX [Concomitant]
     Dosage: UNK, AS NEEDED
  7. OXYBUTYNIN CHLORIDE [Concomitant]
     Dosage: UNK, AS NEEDED
  8. FOLIC ACID [Concomitant]
  9. OSCAL [Concomitant]
  10. LORTAB [Concomitant]
     Dosage: UNK, AS NEEDED
  11. ASPIRIN [Concomitant]

REACTIONS (4)
  - ARTHROPATHY [None]
  - FALL [None]
  - HIP FRACTURE [None]
  - KNEE ARTHROPLASTY [None]
